FAERS Safety Report 4607120-7 (Version None)
Quarter: 2005Q1

REPORT INFORMATION
  Report Type: 
  Country: None (occurrence: None)
  Receive Date: 20050309
  Receipt Date: 20050217
  Transmission Date: 20050727
  Serious: Yes (Death)
  Sender: FDA-Public Use
  Company Number: USA050291131

PATIENT
  Sex: Female

DRUGS (1)
  1. XIGRIS [Suspect]
     Dates: start: 20040101, end: 20040101

REACTIONS (2)
  - COMA [None]
  - NERVOUS SYSTEM DISORDER [None]
